FAERS Safety Report 5006917-1 (Version None)
Quarter: 2006Q2

REPORT INFORMATION
  Report Type: 
  Country: None (occurrence: None)
  Receive Date: 20060517
  Receipt Date: 20060509
  Transmission Date: 20061013
  Serious: No
  Sender: FDA-Public Use
  Company Number: 2006-142349-NL

PATIENT
  Age: 37 Year
  Sex: Female

DRUGS (1)
  1. NUVARING [Suspect]
     Dosage: DF VAGINAL
     Route: 067
     Dates: start: 20050101, end: 20060201

REACTIONS (3)
  - DYSPAREUNIA [None]
  - GENITAL PRURITUS FEMALE [None]
  - OEDEMA GENITAL [None]
